FAERS Safety Report 21070803 (Version 1)
Quarter: 2022Q3

REPORT INFORMATION
  Report Type: Spontaneous
  Country: US (occurrence: None)
  Receive Date: 20220712
  Receipt Date: 20220712
  Transmission Date: 20221027
  Serious: Yes (Other)
  Sender: FDA-Public Use
  Company Number: None

PATIENT
  Age: 28 Year
  Sex: Female
  Weight: 53.1 kg

DRUGS (7)
  1. .DELTA.8-TETRAHYDROCANNABINOL\HERBALS [Suspect]
     Active Substance: .DELTA.8-TETRAHYDROCANNABINOL\HERBALS
     Indication: Insomnia
     Dosage: OTHER QUANTITY : 1 GUMMY;?FREQUENCY : AT BEDTIME;?
     Route: 048
     Dates: start: 20220521, end: 20220521
  2. VITAMIN B12 [Concomitant]
     Active Substance: CYANOCOBALAMIN
  3. HERBALS [Concomitant]
     Active Substance: HERBALS
  4. VITAMIN D [Concomitant]
     Active Substance: VITAMIN D NOS
  5. MAGNESIUM [Concomitant]
     Active Substance: MAGNESIUM
  6. ST. JOHN^S WORT [Concomitant]
     Active Substance: ST. JOHN^S WORT
  7. BENADRYL [Concomitant]
     Active Substance: DIPHENHYDRAMINE HYDROCHLORIDE

REACTIONS (8)
  - Vertigo [None]
  - Dizziness [None]
  - Chest pain [None]
  - Panic attack [None]
  - Gait disturbance [None]
  - Dizziness [None]
  - Sleep disorder [None]
  - Disturbance in attention [None]

NARRATIVE: CASE EVENT DATE: 20220521
